FAERS Safety Report 7249029 (Version 2)
Quarter: 2013Q3

REPORT INFORMATION
  Report Type: Spontaneous
  Country: DE (occurrence: None)
  Receive Date: 20091231
  Receipt Date: 20130709
  Transmission Date: 20140515
  Serious: Yes (Hospitalization, Other)
  Sender: FDA-Public Use
  Company Number: AUR-APL-2009-01621

PATIENT
  Age: 73 Year
  Sex: 0

DRUGS (1)
  1. CLINDAMYCIN [Suspect]
     Dosage: 300MG TID ORAL
     Route: 048

REACTIONS (1)
  - Vasculitis necrotising [None]
